FAERS Safety Report 9288700 (Version 1)
Quarter: 2012Q4

REPORT INFORMATION
  Report Type: Spontaneous
  Country: US (occurrence: None)
  Receive Date: 20120921
  Receipt Date: 20120921
  Transmission Date: 20130627
  Serious: Yes (Other)
  Sender: FDA-Public Use
  Company Number: GER/UKI/12/0025152

PATIENT
  Age: 39 Year
  Sex: Male
  Weight: 64 kg

DRUGS (2)
  1. LAMOTRIGINE [Suspect]
     Indication: EPILEPSY
  2. LORATADINE (LORATADINE) [Concomitant]

REACTIONS (19)
  - Dermatitis allergic [None]
  - Aggression [None]
  - Rash macular [None]
  - Ear discomfort [None]
  - Erythema [None]
  - Somnolence [None]
  - Pruritus [None]
  - Rash [None]
  - Erythema [None]
  - Fatigue [None]
  - Slow response to stimuli [None]
  - Feeling hot [None]
  - Drug ineffective [None]
  - Mood swings [None]
  - Dysarthria [None]
  - Food interaction [None]
  - Swelling face [None]
  - Malaise [None]
  - Convulsion [None]
